FAERS Safety Report 22157121 (Version 1)
Quarter: 2023Q1

REPORT INFORMATION
  Report Type: Spontaneous
  Country: GR (occurrence: None)
  Receive Date: 20230330
  Receipt Date: 20230330
  Transmission Date: 20230418
  Serious: Yes (Hospitalization)
  Sender: FDA-Public Use
  Company Number: 2023A067654

PATIENT
  Age: 8 Year
  Sex: Male

DRUGS (7)
  1. OMEPRAZOLE [Suspect]
     Active Substance: OMEPRAZOLE
  2. ALBUMIN HUMAN [Suspect]
     Active Substance: ALBUMIN HUMAN
  3. TOCILIZUMAB [Suspect]
     Active Substance: TOCILIZUMAB
  4. HEPARIN [Suspect]
     Active Substance: HEPARIN SODIUM
  5. ASPIRIN [Suspect]
     Active Substance: ASPIRIN
     Route: 048
  6. HUMAN IMMUNOGLOBULIN G [Suspect]
     Active Substance: HUMAN IMMUNOGLOBULIN G
  7. CORTISONE [Suspect]
     Active Substance: CORTISONE

REACTIONS (4)
  - Lipase increased [Unknown]
  - Amylase increased [Unknown]
  - Amylase increased [Unknown]
  - Off label use [Unknown]
